FAERS Safety Report 9526108 (Version 2)
Quarter: 2013Q4

REPORT INFORMATION
  Report Type: Spontaneous
  Country: US (occurrence: US)
  Receive Date: 20130916
  Receipt Date: 20131007
  Transmission Date: 20140711
  Serious: Yes (Other)
  Sender: FDA-Public Use
  Company Number: US-009507513-1309USA005596

PATIENT
  Sex: Female

DRUGS (3)
  1. VICTRELIS [Suspect]
     Dosage: 800 MG, TID
     Route: 048
     Dates: start: 20130603, end: 20130911
  2. REBETOL [Suspect]
     Dosage: UNK
     Route: 048
     Dates: start: 20130429, end: 20130911
  3. PEGASYS [Suspect]
     Dosage: UNK
     Dates: start: 20130429, end: 20130911

REACTIONS (4)
  - White blood cell count increased [Unknown]
  - Chest discomfort [Recovering/Resolving]
  - Sputum abnormal [Recovering/Resolving]
  - Asthenia [Recovering/Resolving]
